FAERS Safety Report 8430315-1 (Version None)
Quarter: 2012Q2

REPORT INFORMATION
  Report Type: 
  Country: None (occurrence: None)
  Receive Date: 20120612
  Receipt Date: 20120531
  Transmission Date: 20120825
  Serious: Yes (Hospitalization, Other)
  Sender: FDA-Public Use
  Company Number: JP-AMGEN-JPNSP2012013734

PATIENT
  Age: 82 Year
  Sex: Female
  Weight: 47 kg

DRUGS (15)
  1. MIRCERA [Suspect]
     Indication: NEPHROGENIC ANAEMIA
     Dosage: 100 MG, QMO
     Route: 040
     Dates: start: 20120102, end: 20120201
  2. SENNARIDE [Concomitant]
     Indication: CONSTIPATION
     Dosage: 24 MG, QD
     Route: 048
  3. EPOGIN INJ. 1500,3000 [Concomitant]
     Dosage: 1500 IU, 3 TIMES/WK
     Route: 040
     Dates: start: 20120326
  4. MIRCERA [Suspect]
     Route: 040
     Dates: start: 20120102, end: 20120201
  5. CALTAN OD [Concomitant]
     Indication: HYPERPHOSPHATAEMIA
     Dosage: 500 MG, TID
     Route: 048
  6. EVISTA [Concomitant]
     Indication: OSTEOPOROSIS POSTMENOPAUSAL
     Dosage: 60 MG, QD
     Route: 048
     Dates: start: 20100901
  7. LASIX [Concomitant]
     Indication: HYPERTENSION
     Dosage: AT DIALYSIS
     Route: 048
  8. EPOGIN INJ. 1500,3000 [Concomitant]
     Indication: NEPHROGENIC ANAEMIA
     Dosage: 1500 IU, 2 TIMES/WK
     Route: 040
     Dates: start: 20110818, end: 20111230
  9. GLAKAY [Concomitant]
     Indication: OSTEOPOROSIS POSTMENOPAUSAL
     Dosage: 15 MG, BID
     Route: 048
  10. EPOGIN INJ. 1500,3000 [Concomitant]
     Dosage: 1500 IU, 2 TIMES/WK
     Route: 040
     Dates: start: 20120302, end: 20120323
  11. CINACALCET HYDROCHLORIDE [Suspect]
     Indication: HYPERPARATHYROIDISM SECONDARY
     Dosage: 25 MG, QD
     Route: 048
     Dates: start: 20120123, end: 20120207
  12. PATELL [Concomitant]
     Indication: PERIARTHRITIS
     Dosage: 20 MG, QD
     Route: 061
  13. CINACALCET HYDROCHLORIDE [Suspect]
     Route: 048
     Dates: start: 20120123, end: 20120207
  14. ANPLAG [Concomitant]
     Indication: PERIPHERAL ARTERIAL OCCLUSIVE DISEASE
     Dosage: 100 MG, TID
     Route: 048
     Dates: start: 20111205, end: 20120210
  15. DEPAS [Concomitant]
     Indication: INSOMNIA
     Dosage: 0.5 MG, QD
     Route: 048

REACTIONS (1)
  - ERYTHEMA MULTIFORME [None]
